FAERS Safety Report 16751878 (Version 1)
Quarter: 2019Q3

REPORT INFORMATION
  Report Type: Spontaneous
  Country: FR (occurrence: FR)
  Receive Date: 20190828
  Receipt Date: 20190828
  Transmission Date: 20191005
  Serious: Yes (Hospitalization)
  Sender: FDA-Public Use
  Company Number: FR-TEVA-2019-FR-1097065

PATIENT
  Age: 78 Year
  Sex: Female

DRUGS (8)
  1. PRADAXA [Suspect]
     Active Substance: DABIGATRAN ETEXILATE MESYLATE
     Indication: ISCHAEMIC STROKE
     Route: 048
     Dates: end: 20190715
  2. BISOCE [Concomitant]
     Active Substance: BISOPROLOL
  3. FLUCORTAC 50 MICROGRAMMES, COMPRIME SECABLE [Concomitant]
     Active Substance: FLUDROCORTISONE ACETATE
  4. FUROSEMIDE. [Concomitant]
     Active Substance: FUROSEMIDE
  5. VENLAFAXINE [Suspect]
     Active Substance: VENLAFAXINE HYDROCHLORIDE
     Indication: PRODUCT USED FOR UNKNOWN INDICATION
     Route: 048
  6. PREDNISONE. [Suspect]
     Active Substance: PREDNISONE
     Indication: PRODUCT USED FOR UNKNOWN INDICATION
     Route: 048
  7. RAMIPRIL. [Concomitant]
     Active Substance: RAMIPRIL
  8. INSPRA [Concomitant]
     Active Substance: EPLERENONE

REACTIONS (1)
  - Subdural haematoma [Recovering/Resolving]

NARRATIVE: CASE EVENT DATE: 20190715
